FAERS Safety Report 8142194-0 (Version None)
Quarter: 2012Q1

REPORT INFORMATION
  Report Type: 
  Country: None (occurrence: None)
  Receive Date: 20120216
  Receipt Date: 20120202
  Transmission Date: 20120608
  Serious: Yes (Other)
  Sender: FDA-Public Use
  Company Number: US-ROCHE-1039824

PATIENT
  Sex: Female

DRUGS (6)
  1. LAMICTAL [Concomitant]
  2. OMALIZUMAB [Suspect]
     Indication: ASTHMA
     Route: 058
     Dates: start: 20100813
  3. AMITIZA [Concomitant]
  4. ALBUTEROL [Concomitant]
  5. TRAZODONE HYDROCHLORIDE [Concomitant]
  6. ABILIFY [Concomitant]

REACTIONS (9)
  - SWOLLEN TONGUE [None]
  - VOMITING [None]
  - COUGH [None]
  - DYSPHAGIA [None]
  - HYPOAESTHESIA [None]
  - THROAT TIGHTNESS [None]
  - PNEUMOTHORAX [None]
  - DYSPNOEA [None]
  - MUSCULAR WEAKNESS [None]
